FAERS Safety Report 24120392 (Version 1)
Quarter: 2024Q3

REPORT INFORMATION
  Report Type: Report from Study
  Country: US (occurrence: None)
  Receive Date: 20240722
  Receipt Date: 20240722
  Transmission Date: 20241017
  Serious: Yes (Other)
  Sender: ASTRAZENECA
  Company Number: 2021A006341

PATIENT
  Age: 22375 Day
  Sex: Male
  Weight: 83.9 kg

DRUGS (2)
  1. BRILINTA [Suspect]
     Active Substance: TICAGRELOR
     Indication: Stent placement
     Route: 048
     Dates: start: 20200519
  2. ASPIRIN [Concomitant]
     Active Substance: ASPIRIN
     Indication: Ill-defined disorder
     Route: 048
     Dates: start: 202005

REACTIONS (4)
  - Retinal detachment [Not Recovered/Not Resolved]
  - COVID-19 [Unknown]
  - Headache [Unknown]
  - Sinus disorder [Unknown]

NARRATIVE: CASE EVENT DATE: 20201229
